FAERS Safety Report 7585306-X (Version None)
Quarter: 2011Q2

REPORT INFORMATION
  Report Type: 
  Country: None (occurrence: None)
  Receive Date: 20110623
  Receipt Date: 20110502
  Transmission Date: 20111010
  Serious: No
  Sender: FDA-Public Use
  Company Number: 2011-00264

PATIENT
  Age: 36 Year
  Sex: Male
  Weight: 97.5234 kg

DRUGS (5)
  1. NYQUIL [Concomitant]
  2. ASCORBIC ACID [Concomitant]
  3. QTC DECONGESTANT W/ACETAMINOPHEN [Concomitant]
  4. OXYMETAZOLINE HCL [Suspect]
     Dosage: 1 DAY, 1 DOSE;
  5. MULTI-VITAMIN [Concomitant]

REACTIONS (1)
  - HYPOSMIA [None]
